FAERS Safety Report 14383232 (Version 2)
Quarter: 2018Q1

REPORT INFORMATION
  Report Type: Spontaneous
  Country: US (occurrence: US)
  Receive Date: 20180115
  Receipt Date: 20180205
  Transmission Date: 20180509
  Serious: Yes (Other)
  Sender: FDA-Public Use
  Company Number: US-TEVA-2018-US-844513

PATIENT
  Sex: Female

DRUGS (2)
  1. ALENDRONATE SODIUM. [Suspect]
     Active Substance: ALENDRONATE SODIUM
     Indication: OSTEOPOROSIS
     Route: 065
     Dates: start: 201710, end: 201712
  2. ALENDRONATE SODIUM. [Suspect]
     Active Substance: ALENDRONATE SODIUM
     Indication: BONE LOSS

REACTIONS (13)
  - Eye swelling [Recovered/Resolved]
  - Conjunctivitis [Recovered/Resolved]
  - Pruritus [Recovered/Resolved]
  - Endophthalmitis [Recovered/Resolved]
  - Eyelid pain [Recovered/Resolved]
  - Lacrimation increased [Recovered/Resolved]
  - Swollen tongue [Recovered/Resolved]
  - Eye pain [Recovered/Resolved]
  - Dry skin [Recovering/Resolving]
  - Inflammation [Recovered/Resolved]
  - Swelling face [Recovered/Resolved]
  - Eyelid exfoliation [Recovering/Resolving]
  - Skin wrinkling [Recovered/Resolved]

NARRATIVE: CASE EVENT DATE: 201711
